FAERS Safety Report 25796016 (Version 1)
Quarter: 2025Q3

REPORT INFORMATION
  Report Type: Spontaneous
  Country: EU (occurrence: EU)
  Receive Date: 20250912
  Receipt Date: 20250912
  Transmission Date: 20251020
  Serious: Yes (Other)
  Sender: PFIZER
  Company Number: None

PATIENT
  Age: 67 Year
  Sex: Female
  Weight: 54 kg

DRUGS (6)
  1. ELREXFIO [Suspect]
     Active Substance: ELRANATAMAB-BCMM
     Indication: Plasmacytoma
     Route: 058
     Dates: start: 202504
  2. BELODERM [BETAMETHASONE DIPROPIONATE] [Concomitant]
     Route: 003
     Dates: start: 20250415
  3. VALTREX [Concomitant]
     Active Substance: VALACYCLOVIR HYDROCHLORIDE
     Dosage: 500 MG ONCE PER WEEK
     Route: 048
  4. PENTAMIDINE [Concomitant]
     Active Substance: PENTAMIDINE
  5. IMMUNE GLOBULIN NOS [Concomitant]
     Active Substance: IMMUNE GLOBULIN NOS
     Route: 042
  6. OLIVE OIL [Concomitant]
     Active Substance: OLIVE OIL
     Route: 003
     Dates: start: 20250409

REACTIONS (15)
  - Epidermolysis [Recovered/Resolved]
  - Skin exfoliation [Recovered/Resolved]
  - Bilirubin conjugated increased [Unknown]
  - Blood bilirubin increased [Unknown]
  - Eosinophil percentage increased [Unknown]
  - Haematocrit decreased [Unknown]
  - Light chain analysis decreased [Unknown]
  - Lymphocyte count decreased [Unknown]
  - Mean cell haemoglobin increased [Unknown]
  - Monocyte percentage increased [Unknown]
  - Protein total decreased [Unknown]
  - Red blood cell count decreased [Unknown]
  - Red cell distribution width increased [Unknown]
  - Serum ferritin increased [Unknown]
  - Off label use [Unknown]

NARRATIVE: CASE EVENT DATE: 20250401
